FAERS Safety Report 10031571 (Version 2)
Quarter: 2014Q2

REPORT INFORMATION
  Report Type: Spontaneous
  Country: IE (occurrence: IE)
  Receive Date: 20140324
  Receipt Date: 20140411
  Transmission Date: 20141212
  Serious: Yes (Hospitalization, Other)
  Sender: FDA-Public Use
  Company Number: IE-NOVOPROD-403728

PATIENT
  Sex: 0
  Weight: 75 kg

DRUGS (1)
  1. ACTRAPID [Suspect]
     Indication: SUICIDE ATTEMPT
     Dosage: TOTAL OF 10 MLS (1000 UNITS-4 TIMES OVER 90 MINUTES)
     Route: 065

REACTIONS (3)
  - Suicide attempt [Unknown]
  - Intentional overdose [Recovered/Resolved]
  - Hypoglycaemia [Recovered/Resolved]
